FAERS Safety Report 9623772 (Version 1)
Quarter: 2013Q4

REPORT INFORMATION
  Report Type: Spontaneous
  Country: None (occurrence: None)
  Receive Date: 20131010
  Receipt Date: 20131010
  Transmission Date: 20140711
  Serious: Yes (Other)
  Sender: FDA-Public Use
  Company Number: KAD201310-001312

PATIENT
  Age: 47 Year
  Sex: Female

DRUGS (3)
  1. RIBAVIRIN [Suspect]
     Indication: HEPATITIS C
     Route: 048
     Dates: start: 201302
  2. PEGINTERFERON ALFA- 2B [Suspect]
     Indication: HEPATITIS C
     Route: 058
     Dates: start: 201302
  3. INCIVO (TELAPREVIR) [Suspect]
     Indication: HEPATITIS C
     Route: 048
     Dates: start: 20130221

REACTIONS (4)
  - Weight increased [None]
  - Fatigue [None]
  - Pruritus [None]
  - Proctalgia [None]
